FAERS Safety Report 12473734 (Version 3)
Quarter: 2016Q3

REPORT INFORMATION
  Report Type: Spontaneous
  Country: KR (occurrence: KR)
  Receive Date: 20160616
  Receipt Date: 20160712
  Transmission Date: 20161109
  Serious: Yes (Hospitalization)
  Sender: FDA-Public Use
  Company Number: KR-ABBVIE-16P-090-1650698-00

PATIENT
  Age: 19 Year
  Sex: Male

DRUGS (2)
  1. DEPAKINE [Suspect]
     Active Substance: VALPROATE SODIUM
     Indication: EPILEPSY
     Dosage: GASTRO-RESISTANT TABLET
     Route: 048
     Dates: start: 2011
  2. DEPAKINE [Suspect]
     Active Substance: VALPROATE SODIUM
     Dosage: GASTRO-RESISTANT TABLET
     Route: 048

REACTIONS (7)
  - Thrombocytopenia [Recovered/Resolved]
  - Toxicity to various agents [Recovered/Resolved]
  - Ascites [Recovered/Resolved]
  - Overdose [Recovered/Resolved]
  - Respiratory rate increased [Recovered/Resolved]
  - Loss of consciousness [Recovered/Resolved]
  - Abdominal distension [Recovered/Resolved]
